FAERS Safety Report 23058065 (Version 1)
Quarter: 2023Q4

REPORT INFORMATION
  Report Type: Spontaneous
  Country: PT (occurrence: PT)
  Receive Date: 20231012
  Receipt Date: 20231012
  Transmission Date: 20240110
  Serious: Yes (Other)
  Sender: FDA-Public Use
  Company Number: PT-AMGEN-PRTSP2023176792

PATIENT
  Age: 16 Month

DRUGS (12)
  1. ADALIMUMAB [Suspect]
     Active Substance: ADALIMUMAB
     Indication: Juvenile idiopathic arthritis
     Dosage: 24 MILLIGRAM PER SQUARE METER EVERY TWO WEEKS
     Route: 065
     Dates: start: 2014
  2. METHOTREXATE [Suspect]
     Active Substance: METHOTREXATE
     Indication: Juvenile idiopathic arthritis
     Dosage: UNK
     Route: 048
  3. METHOTREXATE [Suspect]
     Active Substance: METHOTREXATE
     Dosage: 15 MILLIGRAM PER SQUARE METER
     Route: 065
     Dates: start: 2011
  4. IBUPROFEN [Suspect]
     Active Substance: IBUPROFEN
     Indication: Juvenile idiopathic arthritis
     Dosage: 30 MILLIGRAM/KILOGRAM
     Route: 065
     Dates: start: 2010
  5. DEFLAZACORT [Suspect]
     Active Substance: DEFLAZACORT
     Indication: Juvenile idiopathic arthritis
     Dosage: 0.5 MILLIGRAM/ KILOGRAM
     Route: 065
     Dates: start: 2011
  6. TIMOLOL [Suspect]
     Active Substance: TIMOLOL
     Indication: Intraocular pressure increased
     Dosage: 5 MILLIGRAM PER MILLILITRE, BID IN BOTH EYES
     Route: 065
  7. ACETAZOLAMIDE [Suspect]
     Active Substance: ACETAZOLAMIDE
     Indication: Glaucoma
     Dosage: 250 MILLIGRAM, QD
     Route: 065
     Dates: start: 2014
  8. BRINZOLAMIDE [Suspect]
     Active Substance: BRINZOLAMIDE
     Indication: Intraocular pressure test
     Dosage: 10 MILLIGRAM PER MILLILITRE
     Route: 061
  9. LATANOPROST [Suspect]
     Active Substance: LATANOPROST
     Indication: Glaucoma
     Dosage: 0.5 MILLIGRAM PER MILLILITRE
     Route: 061
     Dates: start: 2014
  10. DEXAMETHASONE [Suspect]
     Active Substance: DEXAMETHASONE
     Indication: Product used for unknown indication
     Dosage: TWICE DAILY EACH IN BOTH EYES
     Route: 061
  11. BRIMONIDINE [Suspect]
     Active Substance: BRIMONIDINE TARTRATE
     Indication: Intraocular pressure increased
     Dosage: 2 MILLIGRAM PER MILLILITRE
     Route: 061
  12. TOCILIZUMAB [Concomitant]
     Active Substance: TOCILIZUMAB
     Indication: Product used for unknown indication
     Dosage: 12 MILLIGRAM/ KILOGRAM EVERY TWO WEEKS
     Route: 065

REACTIONS (7)
  - Muscle atrophy [Unknown]
  - Cushing^s syndrome [Unknown]
  - Short stature [Unknown]
  - Cataract subcapsular [Unknown]
  - Uveitis [Unknown]
  - Drug ineffective [Unknown]
  - Intraocular pressure increased [Unknown]
